FAERS Safety Report 15309181 (Version 1)
Quarter: 2018Q3

REPORT INFORMATION
  Report Type: Spontaneous
  Country: US (occurrence: US)
  Receive Date: 20180811
  Receipt Date: 20180811
  Transmission Date: 20181010
  Serious: Yes (Other)
  Sender: FDA-Public Use
  Company Number: None

PATIENT
  Age: 36 Year
  Sex: Female
  Weight: 52.65 kg

DRUGS (6)
  1. WELLBUTRIN [Concomitant]
     Active Substance: BUPROPION HYDROCHLORIDE
  2. DIGESTIVE ENZYMES [Concomitant]
     Active Substance: UNSPECIFIED INGREDIENT
  3. BUPROPION. [Suspect]
     Active Substance: BUPROPION
     Indication: DEPRESSION
     Dosage: ?          QUANTITY:1 TABLET(S);?
     Route: 048
     Dates: start: 20180726, end: 20180809
  4. NALTREXONE [Concomitant]
     Active Substance: NALTREXONE
  5. ZONEGRAN [Concomitant]
     Active Substance: ZONISAMIDE
  6. I?THEANINE [Concomitant]

REACTIONS (5)
  - Product substitution issue [None]
  - Depression [None]
  - Anxiety [None]
  - Stress [None]
  - Herpes zoster [None]

NARRATIVE: CASE EVENT DATE: 20180809
